FAERS Safety Report 7968008-7 (Version None)
Quarter: 2011Q4

REPORT INFORMATION
  Report Type: 
  Country: None (occurrence: None)
  Receive Date: 20111209
  Receipt Date: 20111202
  Transmission Date: 20120403
  Serious: Yes (Hospitalization, Other)
  Sender: FDA-Public Use
  Company Number: US-SANOFI-AVENTIS-2011SA079917

PATIENT
  Age: 59 Year
  Sex: Female
  Weight: 64 kg

DRUGS (23)
  1. PLAVIX [Suspect]
     Route: 048
  2. NEURONTIN [Concomitant]
  3. QUINAPRIL [Concomitant]
  4. CRESTOR [Concomitant]
  5. DITROPAN [Concomitant]
  6. ALL OTHER THERAPEUTIC PRODUCTS [Concomitant]
  7. FLEXERIL [Concomitant]
     Indication: NERVE COMPRESSION
  8. MUSCLE RELAXANTS [Concomitant]
  9. PAXIL [Concomitant]
  10. JANUMET [Concomitant]
     Indication: TYPE 2 DIABETES MELLITUS
  11. PHENAZOPYRIDINE HCL TAB [Concomitant]
  12. KLONOPIN [Concomitant]
     Indication: ANXIETY
  13. TRICOR [Concomitant]
  14. ASPIRIN [Concomitant]
  15. ANALGESICS [Concomitant]
  16. LANOXIN [Concomitant]
  17. POTASSIUM ACETATE [Concomitant]
  18. ANTIBIOTICS [Concomitant]
  19. PREMARIN [Concomitant]
     Indication: HORMONE THERAPY
  20. IRON [Concomitant]
     Indication: ARTERIAL DISORDER
  21. IMDUR [Concomitant]
  22. TOPROL-XL [Concomitant]
  23. LASIX [Concomitant]

REACTIONS (19)
  - CORONARY ARTERY OCCLUSION [None]
  - DEVICE OCCLUSION [None]
  - CARDIAC FAILURE CONGESTIVE [None]
  - DYSPNOEA [None]
  - ABDOMINAL DISTENSION [None]
  - ABDOMINAL ADHESIONS [None]
  - DRUG INEFFECTIVE [None]
  - CAROTID ARTERY OCCLUSION [None]
  - BLADDER PAIN [None]
  - TOOTH EXTRACTION [None]
  - INSOMNIA [None]
  - GASTROINTESTINAL HAEMORRHAGE [None]
  - PAIN IN EXTREMITY [None]
  - VISUAL ACUITY REDUCED [None]
  - TYPE 2 DIABETES MELLITUS [None]
  - NEUROPATHY PERIPHERAL [None]
  - GAIT DISTURBANCE [None]
  - PERIPHERAL ARTERIAL OCCLUSIVE DISEASE [None]
  - BLADDER DYSFUNCTION [None]
